FAERS Safety Report 25953370 (Version 1)
Quarter: 2025Q4

REPORT INFORMATION
  Report Type: Spontaneous
  Country: US (occurrence: None)
  Receive Date: 20251023
  Receipt Date: 20251023
  Transmission Date: 20260117
  Serious: Yes (Hospitalization)
  Sender: FDA-CTU
  Company Number: None

PATIENT
  Sex: Male

DRUGS (11)
  1. REVLIMID [Suspect]
     Active Substance: LENALIDOMIDE
     Indication: Plasma cell myeloma
     Dosage: OTHER FREQUENCY : DAILY FOR 14 DAYS THEN REST 14DAYS OF EACH 28 DAYS CYCLE ;?
     Dates: start: 20250408
  2. ALBUTEROL AER HFA [Concomitant]
  3. AMLODIPINE [Concomitant]
     Active Substance: AMLODIPINE BESYLATE
  4. ASPIRIN [Concomitant]
     Active Substance: ASPIRIN
  5. CALCIUM TAB 500MG [Concomitant]
  6. CARVEDILOL TAB 25MG [Concomitant]
  7. CLONIDINE TAB 0.1 MG [Concomitant]
  8. COMBIVENT AER 20-100 [Concomitant]
  9. CYANOCOBALAM INJ 1000MCG [Concomitant]
  10. DEXAMETHASONE [Concomitant]
     Active Substance: DEXAMETHASONE
  11. FLUOXETINE CAP 20MG [Concomitant]

REACTIONS (2)
  - Asthenia [None]
  - Intentional dose omission [None]
